FAERS Safety Report 15607026 (Version 1)
Quarter: 2018Q4

REPORT INFORMATION
  Report Type: Report from Study
  Country: IT (occurrence: IT)
  Receive Date: 20181112
  Receipt Date: 20181112
  Transmission Date: 20190205
  Serious: Yes (Other)
  Sender: FDA-Public Use
  Company Number: IT-TEVA-2018-IT-973966

PATIENT
  Age: 75 Year
  Sex: Female

DRUGS (1)
  1. FLUOROURACIL (5-FLUOROURACI) [Suspect]
     Active Substance: FLUOROURACIL
     Indication: CERVIX CARCINOMA
     Route: 065

REACTIONS (1)
  - Anal incontinence [Recovered/Resolved]
